FAERS Safety Report 10080882 (Version 1)
Quarter: 2014Q2

REPORT INFORMATION
  Report Type: Spontaneous
  Country: US (occurrence: US)
  Receive Date: 20140416
  Receipt Date: 20140416
  Transmission Date: 20141212
  Serious: Yes (Hospitalization)
  Sender: FDA-Public Use
  Company Number: US-BAYER-2014-056362

PATIENT
  Age: 17 Year
  Sex: Female

DRUGS (4)
  1. YASMIN [Suspect]
     Indication: MENSTRUAL CYCLE MANAGEMENT
  2. ACIPHEX [Concomitant]
     Dosage: 20 MG, BID
     Route: 048
  3. PENTASA [Concomitant]
     Dosage: 500 MG, 2, TID
     Route: 048
  4. MERCAPTOPURINE [Concomitant]
     Dosage: 1 Q.H.S. (AT BEDTIME OR HOURS SLEEP)
     Route: 048

REACTIONS (1)
  - Deep vein thrombosis [None]
